FAERS Safety Report 9575026 (Version 2)
Quarter: 2013Q4

REPORT INFORMATION
  Report Type: Spontaneous
  Country: US (occurrence: US)
  Receive Date: 20131001
  Receipt Date: 20131001
  Transmission Date: 20140711
  Serious: Yes (Hospitalization)
  Sender: FDA-Public Use
  Company Number: US-BAXTER-2012BAX026482

PATIENT
  Age: 54 Year
  Sex: Male

DRUGS (2)
  1. DIANEAL LOW CALCIUM [Suspect]
     Indication: PERITONEAL DIALYSIS
     Route: 033
     Dates: end: 20121205
  2. EXTRANEAL [Suspect]
     Indication: PERITONEAL DIALYSIS
     Route: 033
     Dates: end: 20121205

REACTIONS (7)
  - Abdominal distension [Recovered/Resolved]
  - Fluid retention [Unknown]
  - Peritonitis bacterial [Recovered/Resolved]
  - Weight increased [Recovered/Resolved]
  - Eructation [Recovered/Resolved]
  - Procedural complication [Recovered/Resolved]
  - Peritoneal dialysis complication [Unknown]
